FAERS Safety Report 8244425-5 (Version None)
Quarter: 2012Q1

REPORT INFORMATION
  Report Type: 
  Country: None (occurrence: None)
  Receive Date: 20120329
  Receipt Date: 20120319
  Transmission Date: 20120608
  Serious: Yes (Hospitalization)
  Sender: FDA-Public Use
  Company Number: US-ELI_LILLY_AND_COMPANY-US201202006595

PATIENT
  Age: 62 Year
  Sex: Female
  Weight: 47.166 kg

DRUGS (6)
  1. TRACLEER [Concomitant]
  2. COUMADIN [Concomitant]
     Dosage: 3 MG, UNK
  3. ADCIRCA [Suspect]
     Indication: PULMONARY HYPERTENSION
     Dosage: 40 MG, QD
     Route: 048
     Dates: start: 20120101
  4. TYVASO [Concomitant]
     Indication: COR PULMONALE CHRONIC
     Dosage: 9 DF, QID
     Route: 055
     Dates: start: 20111108
  5. DIURETICS [Concomitant]
  6. COUMADIN [Concomitant]
     Dosage: 2.5 MG, UNK

REACTIONS (5)
  - HEADACHE [None]
  - EYE PAIN [None]
  - PAIN [None]
  - DIARRHOEA [None]
  - VOMITING [None]
